FAERS Safety Report 9514335 (Version 1)
Quarter: 2013Q3

REPORT INFORMATION
  Report Type: Report from Study
  Country: GB (occurrence: GB)
  Receive Date: 20130911
  Receipt Date: 20130911
  Transmission Date: 20140515
  Serious: Yes (Hospitalization)
  Sender: FDA-Public Use
  Company Number: GB-AMGEN-GBRCT2013063013

PATIENT
  Age: 65 Year
  Sex: Male
  Weight: 66.2 kg

DRUGS (9)
  1. ETANERCEPT [Suspect]
     Indication: PRODUCT USED FOR UNKNOWN INDICATION
     Dosage: 50 MG, QWK
     Route: 065
     Dates: start: 20101116, end: 20130406
  2. GLICLAZIDE [Concomitant]
     Dosage: UNK
     Dates: start: 20000601
  3. METFORMIN [Concomitant]
     Dosage: UNK
     Dates: start: 20000601
  4. SIMVASTATIN [Concomitant]
     Dosage: UNK
     Dates: start: 20000601
  5. ASPIRIN [Concomitant]
     Dosage: UNK
     Dates: start: 20090801
  6. BISOPROLOL [Concomitant]
     Dosage: UNK
     Dates: start: 20090801
  7. CLOPIDOGREL [Concomitant]
     Dosage: UNK
     Dates: start: 20090801
  8. LISINOPRIL [Concomitant]
     Dosage: UNK
     Dates: start: 20090801
  9. OMEPRAZOLE [Concomitant]
     Dosage: UNK
     Dates: start: 20090801

REACTIONS (1)
  - Pneumonia [Recovered/Resolved]
